FAERS Safety Report 6331884-8 (Version None)
Quarter: 2009Q3

REPORT INFORMATION
  Report Type: 
  Country: None (occurrence: None)
  Receive Date: 20090826
  Receipt Date: 20090819
  Transmission Date: 20100115
  Serious: Yes (Hospitalization)
  Sender: FDA-Public Use
  Company Number: SPV1-2009-01684

PATIENT
  Sex: 0

DRUGS (1)
  1. ADDERALL XR 10 [Suspect]
     Dosage: 20 MG, ORAL
     Route: 048
     Dates: start: 20090226, end: 20090226

REACTIONS (6)
  - ACCIDENTAL DRUG INTAKE BY CHILD [None]
  - AGITATION [None]
  - BLOOD CREATINE PHOSPHOKINASE INCREASED [None]
  - BLOOD CREATINE PHOSPHOKINASE MB INCREASED [None]
  - MOOD ALTERED [None]
  - TACHYCARDIA [None]
